FAERS Safety Report 7469157-2 (Version None)
Quarter: 2011Q2

REPORT INFORMATION
  Report Type: 
  Country: None (occurrence: None)
  Receive Date: 20110510
  Receipt Date: 20110429
  Transmission Date: 20111010
  Serious: Yes (Other)
  Sender: FDA-Public Use
  Company Number: SE-BAYER-2011-036538

PATIENT
  Age: 45 Year
  Sex: Female

DRUGS (1)
  1. YASMIN [Suspect]
     Indication: PRODUCT USED FOR UNKNOWN INDICATION
     Dosage: UNK
     Route: 048
     Dates: end: 20110224

REACTIONS (2)
  - VENOUS THROMBOSIS LIMB [None]
  - PULMONARY EMBOLISM [None]
